FAERS Safety Report 9227942 (Version 1)
Quarter: 2013Q2

REPORT INFORMATION
  Report Type: Spontaneous
  Country: US (occurrence: None)
  Receive Date: 20130411
  Receipt Date: 20130411
  Transmission Date: 20140414
  Serious: Yes (Other)
  Sender: FDA-Public Use
  Company Number: None

PATIENT
  Age: 68 Year
  Sex: Male
  Weight: 77.11 kg

DRUGS (1)
  1. LUMIGAN [Suspect]
     Dates: start: 20121107, end: 20131206

REACTIONS (2)
  - Visual acuity reduced [None]
  - Open angle glaucoma [None]
